FAERS Safety Report 7425911-4 (Version None)
Quarter: 2011Q2

REPORT INFORMATION
  Report Type: 
  Country: None (occurrence: None)
  Receive Date: 20110420
  Receipt Date: 20110415
  Transmission Date: 20111010
  Serious: Yes (Life-Threatening)
  Sender: FDA-Public Use
  Company Number: IT-ROCHE-769691

PATIENT
  Sex: Female

DRUGS (2)
  1. PACLITAXEL [Suspect]
     Indication: OVARIAN CANCER
     Dosage: FREQUENCY REPORTED AS CYCLIC. DRUG REPORTED AS PACLITAXEL TEVA.
     Route: 042
     Dates: start: 20110325, end: 20110325
  2. AVASTIN [Suspect]
     Indication: OVARIAN CANCER
     Dosage: FREQUENCY REPORTED AS CYCLIC
     Route: 042
     Dates: start: 20110325, end: 20110325

REACTIONS (3)
  - PERITONITIS [None]
  - ACUTE ABDOMEN [None]
  - PERITONEAL PERFORATION [None]
